FAERS Safety Report 9869690 (Version 2)
Quarter: 2014Q1

REPORT INFORMATION
  Report Type: Spontaneous
  Country: BR (occurrence: None)
  Receive Date: 20140131
  Receipt Date: 20140228
  Transmission Date: 20141002
  Serious: Yes (Hospitalization)
  Sender: FDA-Public Use
  Company Number: VAL_02955_2014

PATIENT
  Age: 68 Year
  Sex: Male
  Weight: 45 kg

DRUGS (7)
  1. ROCALTROL [Suspect]
     Indication: MINERAL SUPPLEMENTATION
     Dates: start: 20131223
  2. ROCALTROL [Suspect]
     Indication: HYPOPARATHYROIDISM
     Dates: start: 20131223
  3. CARBAMAZEPINE [Concomitant]
  4. SIMVASTATIN [Concomitant]
  5. NIFEDIPINE [Concomitant]
  6. CLORANA [Concomitant]
  7. FERROUS SULPHATE [Concomitant]

REACTIONS (9)
  - Renal disorder [None]
  - Urinary tract infection [None]
  - Drug dose omission [None]
  - Malaise [None]
  - Gait disturbance [None]
  - Muscle atrophy [None]
  - Weight decreased [None]
  - Renal impairment [None]
  - Asthenia [None]
